FAERS Safety Report 6534523-6 (Version None)
Quarter: 2010Q1

REPORT INFORMATION
  Report Type: 
  Country: None (occurrence: None)
  Receive Date: 20100112
  Receipt Date: 20100101
  Transmission Date: 20100710
  Serious: Yes (Other)
  Sender: FDA-Public Use
  Company Number: US-JNJCH-2010000426

PATIENT
  Age: 63 Year
  Sex: Female
  Weight: 59 kg

DRUGS (4)
  1. BENADRYL [Suspect]
     Indication: SLEEP DISORDER
     Dosage: TEXT:2 TABLETS NIGHTLY
     Route: 048
     Dates: start: 20090101, end: 20100101
  2. LAMICTAL [Concomitant]
     Indication: DEPRESSION
     Dosage: TEXT:5 MG UNSPECIFIED
     Route: 065
  3. XANAX [Concomitant]
     Indication: DEPRESSION
     Dosage: TEXT:UNSPECIFIED
     Route: 065
  4. AMBIEN [Concomitant]
     Indication: DRUG USE FOR UNKNOWN INDICATION
     Dosage: TEXT:UNSPECIFIED
     Route: 065

REACTIONS (2)
  - CYSTITIS [None]
  - OFF LABEL USE [None]
